FAERS Safety Report 16445961 (Version 2)
Quarter: 2019Q3

REPORT INFORMATION
  Report Type: Spontaneous
  Country: US (occurrence: US)
  Receive Date: 20190618
  Receipt Date: 20190711
  Transmission Date: 20191004
  Serious: Yes (Hospitalization)
  Sender: FDA-Public Use
  Company Number: US-VERTEX PHARMACEUTICALS-2019-005522

PATIENT
  Sex: Male
  Weight: 57 kg

DRUGS (3)
  1. TOBI [Concomitant]
     Active Substance: TOBRAMYCIN
     Dosage: 112 MILLIGRAM, BID
     Route: 055
  2. SYMDEKO [Suspect]
     Active Substance: IVACAFTOR\TEZACAFTOR
     Indication: CYSTIC FIBROSIS
     Dosage: 100MG TEZACAFTOR/150MG IVACAFTOR; 150MG IVACAFTOR TABLETS, BID
     Route: 048
  3. PULMOZYME [Concomitant]
     Active Substance: DORNASE ALFA
     Dosage: 2.5 MILLIGRAM, QD
     Route: 055

REACTIONS (1)
  - Infection [Unknown]

NARRATIVE: CASE EVENT DATE: 2019
